FAERS Safety Report 10245210 (Version 4)
Quarter: 2014Q3

REPORT INFORMATION
  Report Type: Spontaneous
  Country: DE (occurrence: DE)
  Receive Date: 20140618
  Receipt Date: 20140704
  Transmission Date: 20150326
  Serious: Yes (Other)
  Sender: FDA-Public Use
  Company Number: DE-UCBSA-117400

PATIENT
  Age: 72 Year
  Sex: Female
  Weight: 70 kg

DRUGS (9)
  1. VIGANTOLETTEN [Concomitant]
     Active Substance: CHOLECALCIFEROL
     Dosage: VIGANTOLETTEN 1000, TAB (ONCE A DAY)
  2. RESTEX [Concomitant]
     Active Substance: BENSERAZIDE
     Dosage: 10MG/25 MG ONCE DAILY (QD)
     Dates: start: 2010, end: 2014
  3. RESTEX [Concomitant]
     Active Substance: BENSERAZIDE
     Dosage: 100MG/25MG, ONCE DAILY (QD)
     Dates: start: 2010, end: 2014
  4. NEUPRO [Suspect]
     Active Substance: ROTIGOTINE
     Indication: RESTLESS LEGS SYNDROME
     Dosage: 3 MG, ONCE DAILY (QD)
     Route: 003
     Dates: start: 20131218, end: 20140425
  5. MIRTAZAPINE. [Concomitant]
     Active Substance: MIRTAZAPINE
     Dosage: 1A PHARMA 15MG, ODT (ONCE A DAY)
  6. RESTEX [Concomitant]
     Active Substance: BENSERAZIDE
     Dosage: 100MG/25MG, ONCE AT NIGHT
  7. RESTEX [Concomitant]
     Active Substance: BENSERAZIDE
     Dosage: UNK
  8. MULTAQ [Concomitant]
     Active Substance: DRONEDARONE
     Dosage: 400 MG FILM-COATED TABLETS (TWICE A DAY)
  9. SCHLAFSTERNE [Concomitant]

REACTIONS (6)
  - Application site pruritus [Recovering/Resolving]
  - Skin swelling [Recovering/Resolving]
  - Skin reaction [Unknown]
  - Eczema [Recovering/Resolving]
  - Application site vesicles [Unknown]
  - Erythema [Recovering/Resolving]

NARRATIVE: CASE EVENT DATE: 2014
